FAERS Safety Report 21353972 (Version 3)
Quarter: 2023Q1

REPORT INFORMATION
  Report Type: Other
  Country: IT (occurrence: IT)
  Receive Date: 20220920
  Receipt Date: 20230206
  Transmission Date: 20230418
  Serious: Yes (Hospitalization, Other)
  Sender: FDA-Public Use
  Company Number: None

PATIENT
  Age: 75 Year
  Sex: Male
  Weight: 104 kg

DRUGS (2)
  1. ENZALUTAMIDE [Suspect]
     Active Substance: ENZALUTAMIDE
     Indication: Prostate cancer
     Route: 048
  2. Triptorelina [Concomitant]
     Indication: Product used for unknown indication
     Route: 065

REACTIONS (1)
  - Atrial fibrillation [Recovered/Resolved with Sequelae]

NARRATIVE: CASE EVENT DATE: 20220831
